FAERS Safety Report 10279784 (Version 2)
Quarter: 2019Q2

REPORT INFORMATION
  Report Type: Report from Study
  Country: CA (occurrence: CA)
  Receive Date: 20140707
  Receipt Date: 20190404
  Transmission Date: 20190711
  Serious: Yes (Death)
  Sender: FDA-Public Use
  Company Number: CA-JNJFOC-20140703561

PATIENT
  Age: 70 Year
  Sex: Male
  Weight: 64 kg

DRUGS (5)
  1. REMICADE [Suspect]
     Active Substance: INFLIXIMAB
     Indication: RHEUMATOID ARTHRITIS
     Route: 042
     Dates: start: 200205, end: 20061003
  2. METHOTREXATE. [Concomitant]
     Active Substance: METHOTREXATE
     Indication: RHEUMATOID ARTHRITIS
     Route: 048
     Dates: start: 1997
  3. INDOMETHACIN. [Concomitant]
     Active Substance: INDOMETHACIN
     Indication: RHEUMATOID ARTHRITIS
     Route: 065
  4. FOLIC ACID. [Concomitant]
     Active Substance: FOLIC ACID
     Indication: RHEUMATOID ARTHRITIS
     Route: 048
     Dates: start: 1997
  5. NEORAL [Concomitant]
     Active Substance: CYCLOSPORINE
     Indication: RHEUMATOID ARTHRITIS
     Route: 048
     Dates: start: 1995

REACTIONS (1)
  - Throat cancer [Fatal]

NARRATIVE: CASE EVENT DATE: 20061015
